FAERS Safety Report 23214634 (Version 1)
Quarter: 2023Q4

REPORT INFORMATION
  Report Type: Report from Study
  Country: DO (occurrence: DO)
  Receive Date: 20231121
  Receipt Date: 20231121
  Transmission Date: 20240110
  Serious: Yes (Other)
  Sender: FDA-Public Use
  Company Number: DO-ABBVIE-5437349

PATIENT
  Age: 46 Year
  Sex: Female
  Weight: 86.182 kg

DRUGS (1)
  1. HUMIRA [Suspect]
     Active Substance: ADALIMUMAB
     Indication: Ankylosing spondylitis
     Dosage: FORM STRENGTH: 40 MILLIGRAM
     Route: 058
     Dates: start: 20170906, end: 20230831

REACTIONS (12)
  - Ligament rupture [Unknown]
  - Oedema peripheral [Recovering/Resolving]
  - Joint injury [Recovering/Resolving]
  - Gait disturbance [Recovering/Resolving]
  - Fall [Recovering/Resolving]
  - Arthropathy [Recovering/Resolving]
  - Joint effusion [Unknown]
  - Mobility decreased [Recovering/Resolving]
  - Pain [Recovering/Resolving]
  - Meniscus injury [Unknown]
  - Accident [Recovering/Resolving]
  - Fall [Unknown]

NARRATIVE: CASE EVENT DATE: 20230901
